FAERS Safety Report 20160904 (Version 2)
Quarter: 2021Q4

REPORT INFORMATION
  Report Type: Spontaneous
  Country: GB (occurrence: GB)
  Receive Date: 20211208
  Receipt Date: 20211216
  Transmission Date: 20220303
  Serious: Yes (Other)
  Sender: FDA-Public Use
  Company Number: GB-PFIZER INC-202101706275

PATIENT
  Age: 9 Year
  Sex: Female

DRUGS (9)
  1. METHOTREXATE SODIUM [Suspect]
     Active Substance: METHOTREXATE SODIUM
     Indication: Polyarthritis
     Dosage: UNK
  2. METHOTREXATE SODIUM [Suspect]
     Active Substance: METHOTREXATE SODIUM
     Indication: Fatigue
  3. METHOTREXATE SODIUM [Suspect]
     Active Substance: METHOTREXATE SODIUM
     Indication: Leukopenia
  4. ETANERCEPT [Suspect]
     Active Substance: ETANERCEPT
     Indication: Raynaud^s phenomenon
     Dosage: UNK
  5. ETANERCEPT [Suspect]
     Active Substance: ETANERCEPT
     Indication: Fatigue
  6. ETANERCEPT [Suspect]
     Active Substance: ETANERCEPT
     Indication: Leukopenia
  7. PREDNISOLONE [Suspect]
     Active Substance: PREDNISOLONE
     Indication: Polyarthritis
     Dosage: UNK
  8. PREDNISOLONE [Suspect]
     Active Substance: PREDNISOLONE
     Indication: Fatigue
  9. PREDNISOLONE [Suspect]
     Active Substance: PREDNISOLONE
     Indication: Leukopenia

REACTIONS (1)
  - Dermatomyositis [Unknown]
